FAERS Safety Report 6232301-9 (Version None)
Quarter: 2009Q2

REPORT INFORMATION
  Report Type: 
  Country: None (occurrence: None)
  Receive Date: 20090617
  Receipt Date: 20090611
  Transmission Date: 20091009
  Serious: Yes (Other)
  Sender: FDA-Public Use
  Company Number: US-PFIZER INC-2009200385

PATIENT
  Sex: Male
  Weight: 97.506 kg

DRUGS (7)
  1. SUTENT [Suspect]
     Indication: RENAL CANCER
     Dosage: UNK
     Dates: start: 20080101
  2. VYTORIN [Concomitant]
  3. LISINOPRIL [Concomitant]
  4. MINOXIDIL [Concomitant]
  5. NIASPAN [Concomitant]
  6. PRILOSEC [Concomitant]
  7. ATENOLOL [Concomitant]

REACTIONS (1)
  - JOINT EFFUSION [None]
